FAERS Safety Report 4784936-8 (Version None)
Quarter: 2005Q3

REPORT INFORMATION
  Report Type: 
  Country: None (occurrence: None)
  Receive Date: 20050930
  Receipt Date: 20050921
  Transmission Date: 20060218
  Serious: Yes (Hospitalization)
  Sender: FDA-Public Use
  Company Number: PHHO2005JP15005

PATIENT
  Sex: Male
  Weight: 68 kg

DRUGS (6)
  1. LOCHOL [Suspect]
     Indication: HYPERCHOLESTEROLAEMIA
     Dosage: 20 MG, QD
     Route: 048
     Dates: start: 20010413
  2. CONIEL [Concomitant]
     Indication: HYPERTENSION
  3. PANALDINE [Concomitant]
     Indication: CEREBRAL INFARCTION
  4. URINORM [Concomitant]
     Indication: GOUT
  5. COVERSYL [Concomitant]
     Indication: HYPERTENSION
  6. GASTER D [Concomitant]
     Indication: GASTRITIS

REACTIONS (6)
  - ANGINA PECTORIS [None]
  - CATHETERISATION CARDIAC [None]
  - CORONARY ANGIOPLASTY [None]
  - CORONARY ARTERY STENOSIS [None]
  - ELECTROCARDIOGRAM ABNORMAL [None]
  - STENT PLACEMENT [None]
